FAERS Safety Report 8533514-3 (Version None)
Quarter: 2012Q3

REPORT INFORMATION
  Report Type: 
  Country: None (occurrence: None)
  Receive Date: 20120724
  Receipt Date: 20120712
  Transmission Date: 20120928
  Serious: Yes (Other)
  Sender: FDA-Public Use
  Company Number: US-ELI_LILLY_AND_COMPANY-US201207004456

PATIENT
  Sex: Male

DRUGS (4)
  1. METOPROLOL SUCCINATE [Concomitant]
     Dosage: 50 MG, UNKNOWN
  2. PRAVACHOL [Concomitant]
     Dosage: 20 MG, UNKNOWN
  3. LOSARTAN POTASSIUM [Concomitant]
     Dosage: 100 MG, UNKNOWN
  4. EFFIENT [Suspect]
     Indication: STENT PLACEMENT
     Dosage: 10 MG, UNKNOWN
     Route: 065
     Dates: start: 20120201

REACTIONS (11)
  - SCAB [None]
  - SKIN HAEMORRHAGE [None]
  - PRURITUS [None]
  - DRY SKIN [None]
  - BURNING SENSATION [None]
  - FUNGAL INFECTION [None]
  - RASH [None]
  - ROSACEA [None]
  - EPISTAXIS [None]
  - SKIN CANCER [None]
  - SKIN EXFOLIATION [None]
